FAERS Safety Report 10665886 (Version 1)
Quarter: 2014Q4

REPORT INFORMATION
  Report Type: Spontaneous
  Country: FR (occurrence: FR)
  Receive Date: 20141219
  Receipt Date: 20141219
  Transmission Date: 20150529
  Serious: Yes (Other)
  Sender: FDA-Public Use
  Company Number: FR-ASTRAZENECA-2014SE96319

PATIENT
  Age: 51 Year
  Sex: Female

DRUGS (9)
  1. DIFFU K [Suspect]
     Active Substance: POTASSIUM CHLORIDE
     Route: 048
     Dates: start: 2013
  2. LASILIX [Suspect]
     Active Substance: FUROSEMIDE
     Route: 048
     Dates: start: 201209
  3. MAG II [Concomitant]
  4. INEXIUM [Suspect]
     Active Substance: ESOMEPRAZOLE
     Route: 048
     Dates: start: 2013
  5. TOPALGIC [Suspect]
     Active Substance: TRAMADOL
     Indication: PAIN
     Route: 048
     Dates: start: 2013
  6. ALDACTONE [Suspect]
     Active Substance: SPIRONOLACTONE
     Route: 048
     Dates: start: 201209, end: 201406
  7. NICOBION [Concomitant]
     Active Substance: NIACINAMIDE
  8. SPECIAFOLDINE [Concomitant]
     Active Substance: FOLIC ACID
  9. AOTAL [Concomitant]
     Active Substance: ACAMPROSATE CALCIUM

REACTIONS (6)
  - Hepatic cirrhosis [Unknown]
  - Lichenoid keratosis [Recovered/Resolved with Sequelae]
  - Blood zinc decreased [Unknown]
  - Alopecia [Recovered/Resolved with Sequelae]
  - Drug eruption [Recovered/Resolved with Sequelae]
  - Pruritus [Recovered/Resolved with Sequelae]

NARRATIVE: CASE EVENT DATE: 2013
